FAERS Safety Report 7168135-0 (Version None)
Quarter: 2010Q4

REPORT INFORMATION
  Report Type: 
  Country: None (occurrence: None)
  Receive Date: 20101202
  Receipt Date: 20101116
  Transmission Date: 20110411
  Serious: Yes (Other)
  Sender: FDA-Public Use
  Company Number: 2010S1021100

PATIENT
  Age: 27 Year
  Sex: Male
  Weight: 86.2 kg

DRUGS (2)
  1. SUBUTEX [Suspect]
     Indication: DRUG LEVEL
     Dosage: 8 MG;ONCE;SUBLINGUAL
     Route: 060
     Dates: start: 20101009, end: 20101009
  2. NALTREXONE HYDROCHLORIDE [Concomitant]

REACTIONS (1)
  - TESTIS CANCER [None]
